FAERS Safety Report 9663482 (Version 2)
Quarter: 2013Q4

REPORT INFORMATION
  Report Type: Spontaneous
  Country: NL (occurrence: NL)
  Receive Date: 20131101
  Receipt Date: 20131111
  Transmission Date: 20140711
  Serious: Yes (Other)
  Sender: FDA-Public Use
  Company Number: NL-RANBAXY-2013R1-74632

PATIENT
  Age: 68 Year
  Sex: Female

DRUGS (5)
  1. ATORAB 10MG FILMOMHULDE TABLETTEN [Suspect]
     Indication: HYPERCHOLESTEROLAEMIA
     Dosage: 10 MG, QD
     Route: 048
     Dates: start: 2005, end: 20130930
  2. ATENOLOL [Concomitant]
     Indication: PRODUCT USED FOR UNKNOWN INDICATION
     Dosage: 50 MG, BID
     Route: 048
     Dates: start: 2005
  3. COAPROVEL [Concomitant]
     Indication: PRODUCT USED FOR UNKNOWN INDICATION
     Dosage: 1 DF, QD
     Route: 048
     Dates: start: 2007
  4. INSULATARD FLEXPEN INJ 100IE/ ML WWSP 3ML [Concomitant]
     Indication: PRODUCT USED FOR UNKNOWN INDICATION
     Dosage: UNK
     Route: 058
     Dates: start: 2005
  5. NOVORAPID FLEXPEN INJVLST 100E/ML WWSP 3ML [Concomitant]
     Indication: PRODUCT USED FOR UNKNOWN INDICATION
     Dosage: UNK
     Route: 058
     Dates: start: 2007

REACTIONS (2)
  - Skin exfoliation [Recovered/Resolved]
  - Blister [Recovered/Resolved]
